FAERS Safety Report 8314013-0 (Version None)
Quarter: 2012Q2

REPORT INFORMATION
  Report Type: 
  Country: None (occurrence: None)
  Receive Date: 20120426
  Receipt Date: 20110808
  Transmission Date: 20120825
  Serious: Yes (Other)
  Sender: FDA-Public Use
  Company Number: US-TEVA-US023118

PATIENT
  Sex: Female
  Weight: 67 kg

DRUGS (10)
  1. ST. JOHNS WORT [Concomitant]
     Indication: DEPRESSION
     Dosage: 900 MILLIGRAM;
     Route: 048
     Dates: start: 20070101
  2. DEPLIN [Concomitant]
     Indication: DEPRESSION
     Dosage: 7.5 MILLIGRAM;
     Route: 048
     Dates: start: 20080111
  3. RISPERDAL [Suspect]
     Indication: PSYCHOTIC DISORDER
     Dosage: 3 MILLIGRAM;
     Route: 048
     Dates: start: 20080316
  4. PROVIGIL [Suspect]
     Dosage: 100 MILLIGRAM;
     Route: 048
     Dates: start: 20080327
  5. PROVIGIL [Suspect]
     Indication: SOMNOLENCE
     Dosage: 25 MILLIGRAM;
     Route: 048
     Dates: start: 20080130, end: 20080218
  6. VITAMIN E [Concomitant]
     Indication: SUPPLEMENTATION THERAPY
     Dosage: 400 IU (INTERNATIONAL UNIT);
     Route: 048
     Dates: start: 19970101
  7. MULTI-VITAMIN [Concomitant]
     Indication: SUPPLEMENTATION THERAPY
     Route: 048
     Dates: start: 20040101
  8. GREEN TEA [Concomitant]
     Indication: SOMNOLENCE
     Dosage: 350 MILLIGRAM;
     Route: 048
     Dates: start: 20071001
  9. INVEGA [Suspect]
     Indication: PSYCHOTIC DISORDER
     Dosage: 3-6MG QD
     Route: 048
     Dates: start: 20071201, end: 20080315
  10. PROVIGIL [Suspect]
     Dosage: 50 MILLIGRAM;
     Route: 048
     Dates: start: 20080219, end: 20080321

REACTIONS (5)
  - FATIGUE [None]
  - TREMOR [None]
  - DEPRESSION [None]
  - DELUSION [None]
  - SOMNOLENCE [None]
